FAERS Safety Report 24576716 (Version 4)
Quarter: 2025Q2

REPORT INFORMATION
  Report Type: Spontaneous
  Country: US (occurrence: US)
  Receive Date: 20241104
  Receipt Date: 20250421
  Transmission Date: 20250717
  Serious: Yes (Other)
  Sender: PFIZER
  Company Number: US-PFIZER INC-PV202400141462

PATIENT
  Age: 72 Year
  Sex: Female

DRUGS (4)
  1. XELJANZ [Suspect]
     Active Substance: TOFACITINIB CITRATE
     Indication: Rheumatoid arthritis
     Dosage: 5MG TABLET BY MOUTH TWICE DAILY
     Route: 048
     Dates: start: 202404, end: 202411
  2. XELJANZ [Suspect]
     Active Substance: TOFACITINIB CITRATE
     Dates: end: 202411
  3. XELJANZ [Suspect]
     Active Substance: TOFACITINIB CITRATE
     Dosage: 5 MG, 2X/DAY
     Route: 048
     Dates: start: 202404, end: 20250105
  4. RINVOQ [Concomitant]
     Active Substance: UPADACITINIB

REACTIONS (4)
  - Sciatica [Recovering/Resolving]
  - Gait disturbance [Recovering/Resolving]
  - Therapeutic response unexpected [Unknown]
  - Product dose omission in error [Unknown]

NARRATIVE: CASE EVENT DATE: 20240101
